FAERS Safety Report 9476073 (Version 1)
Quarter: 2013Q3

REPORT INFORMATION
  Report Type: Spontaneous
  Country: US (occurrence: None)
  Receive Date: 20130822
  Receipt Date: 20130822
  Transmission Date: 20140515
  Serious: Yes (Other)
  Sender: FDA-Public Use
  Company Number: None

PATIENT
  Age: 79 Year
  Sex: Female

DRUGS (1)
  1. JAKAFI [Suspect]
     Dosage: 10 MG BID PO
     Route: 048
     Dates: start: 201308, end: 201308

REACTIONS (2)
  - Gastrointestinal haemorrhage [None]
  - Hospice care [None]
